FAERS Safety Report 19645210 (Version 3)
Quarter: 2023Q2

REPORT INFORMATION
  Report Type: Spontaneous
  Country: JP (occurrence: JP)
  Receive Date: 20210802
  Receipt Date: 20230525
  Transmission Date: 20230722
  Serious: Yes (Death)
  Sender: FDA-Public Use
  Company Number: JP-DSJP-DSJ-2021-123608

PATIENT
  Age: 77 Year
  Sex: Female
  Weight: 71 kg

DRUGS (11)
  1. BEVACIZUMAB [Suspect]
     Active Substance: BEVACIZUMAB
     Indication: Colon cancer
     Dosage: 460 MILLIGRAM, 11 TIMES TOTAL
     Route: 042
     Dates: start: 20200710, end: 20210324
  2. IPILIMUMAB [Suspect]
     Active Substance: IPILIMUMAB
     Indication: Colon cancer
     Dosage: 70 MG
     Route: 042
     Dates: start: 20210610
  3. NIVOLUMAB [Suspect]
     Active Substance: NIVOLUMAB
     Indication: Colon cancer
     Dosage: 240 MG
     Route: 042
     Dates: start: 20210610
  4. OXALIPLATIN [Concomitant]
     Active Substance: OXALIPLATIN
     Indication: Colon cancer
     Dosage: UNK
     Route: 065
     Dates: start: 20200731, end: 20210202
  5. OXALIPLATIN [Concomitant]
     Active Substance: OXALIPLATIN
     Indication: Metastases to lymph nodes
     Dosage: UNK
  6. ELIQUIS [Concomitant]
     Active Substance: APIXABAN
     Dosage: UNK
     Route: 065
  7. MIYA-BM [Concomitant]
     Active Substance: CLOSTRIDIUM BUTYRICUM SPORES STRAIN M-55
     Dosage: UNK
     Route: 065
  8. DECADRON [Concomitant]
     Active Substance: DEXAMETHASONE
     Dosage: UNK
     Route: 065
  9. AMLODIPINE BESYLATE [Concomitant]
     Active Substance: AMLODIPINE BESYLATE
     Dosage: UNK
     Route: 065
  10. CAPECITABINE [Concomitant]
     Active Substance: CAPECITABINE
     Indication: Colon cancer
     Dosage: UNK
     Route: 065
  11. CAPECITABINE [Concomitant]
     Active Substance: CAPECITABINE
     Indication: Metastases to lymph nodes
     Dosage: UNK

REACTIONS (2)
  - Urinary tract infection [Fatal]
  - Female genital tract fistula [Fatal]

NARRATIVE: CASE EVENT DATE: 20210127
